FAERS Safety Report 12374164 (Version 3)
Quarter: 2017Q1

REPORT INFORMATION
  Report Type: Spontaneous
  Country: US (occurrence: US)
  Receive Date: 20160517
  Receipt Date: 20170207
  Transmission Date: 20170428
  Serious: Yes (Death, Life-Threatening, Other)
  Sender: FDA-Public Use
  Company Number: US-JNJFOC-20160507197

PATIENT
  Age: 39 Year
  Sex: Male

DRUGS (2)
  1. IMODIUM [Suspect]
     Active Substance: LOPERAMIDE HYDROCHLORIDE
     Indication: PRODUCT USED FOR UNKNOWN INDICATION
     Route: 065
  2. IMODIUM [Suspect]
     Active Substance: LOPERAMIDE HYDROCHLORIDE
     Route: 065

REACTIONS (7)
  - Overdose [Fatal]
  - Drug abuse [Fatal]
  - Toxicity to various agents [Unknown]
  - Pulmonary oedema [Fatal]
  - Arrhythmia [Fatal]
  - Cardiotoxicity [Fatal]
  - Cardiomegaly [Fatal]
